FAERS Safety Report 8353715-7 (Version None)
Quarter: 2012Q2

REPORT INFORMATION
  Report Type: 
  Country: None (occurrence: None)
  Receive Date: 20120511
  Receipt Date: 20110920
  Transmission Date: 20120825
  Serious: No
  Sender: FDA-Public Use
  Company Number: US-GLAXOSMITHKLINE-A0945311A

PATIENT
  Age: 58 Year
  Sex: Female

DRUGS (4)
  1. VITAMIN B6 [Concomitant]
  2. XELODA [Concomitant]
  3. REGLAN [Concomitant]
  4. TYKERB [Suspect]
     Indication: BREAST CANCER
     Dosage: 1000MG PER DAY
     Route: 048
     Dates: start: 20110916

REACTIONS (1)
  - DIARRHOEA [None]
